FAERS Safety Report 16332457 (Version 1)
Quarter: 2019Q2

REPORT INFORMATION
  Report Type: Spontaneous
  Country: US (occurrence: US)
  Receive Date: 20190520
  Receipt Date: 20190520
  Transmission Date: 20190711
  Serious: No
  Sender: FDA-Public Use
  Company Number: US-PFIZER INC-2019207766

PATIENT
  Age: 61 Year
  Sex: Female
  Weight: 79.83 kg

DRUGS (1)
  1. RAPAMUNE [Suspect]
     Active Substance: SIROLIMUS
     Indication: RENAL TRANSPLANT
     Dosage: 3 MG, 1X/DAY (THREE 1MG ONCE A DAY)

REACTIONS (2)
  - Weight decreased [Unknown]
  - Visual impairment [Recovering/Resolving]
